FAERS Safety Report 20621790 (Version 1)
Quarter: 2022Q1

REPORT INFORMATION
  Report Type: Spontaneous
  Country: OM (occurrence: OM)
  Receive Date: 20220322
  Receipt Date: 20220322
  Transmission Date: 20220424
  Serious: Yes (Other)
  Sender: FDA-Public Use
  Company Number: OM-NOVARTISPH-NVSC2022OM062330

PATIENT
  Age: 55 Year
  Sex: Female

DRUGS (3)
  1. LETROZOLE [Suspect]
     Active Substance: LETROZOLE
     Indication: Product used for unknown indication
     Dosage: UNK
     Route: 065
  2. ZOMETA [Suspect]
     Active Substance: ZOLEDRONIC ACID
     Indication: Product used for unknown indication
     Dosage: UNK
     Route: 065
  3. PALBOCICLIB [Suspect]
     Active Substance: PALBOCICLIB
     Indication: Breast cancer
     Dosage: UNK
     Route: 065
     Dates: start: 201908

REACTIONS (5)
  - Renal failure [Unknown]
  - Uraemic encephalopathy [Unknown]
  - Radiation pneumonitis [Unknown]
  - Pulmonary mass [Unknown]
  - Metastases to bone [Unknown]

NARRATIVE: CASE EVENT DATE: 20210201
